FAERS Safety Report 19640463 (Version 1)
Quarter: 2021Q3

REPORT INFORMATION
  Report Type: Spontaneous
  Country: US (occurrence: US)
  Receive Date: 20210729
  Receipt Date: 20210729
  Transmission Date: 20211014
  Serious: No
  Sender: FDA-Public Use
  Company Number: US-PERRIGO-21US003087

PATIENT
  Age: 72 Year
  Sex: Female
  Weight: 44.44 kg

DRUGS (2)
  1. MINOXIDIL. [Suspect]
     Active Substance: MINOXIDIL
     Indication: ALOPECIA
     Dosage: 0.5 ML, QD, PRN
     Route: 061
     Dates: start: 202001, end: 20210222
  2. CLOBETASOL PROPIONATE. [Concomitant]
     Active Substance: CLOBETASOL PROPIONATE
     Indication: ALOPECIA
     Dosage: UNKNOWN, UNKNOWN
     Route: 065
     Dates: start: 2020

REACTIONS (2)
  - Hypertrichosis [Not Recovered/Not Resolved]
  - Off label use [Recovered/Resolved]

NARRATIVE: CASE EVENT DATE: 202001
